FAERS Safety Report 19325134 (Version 1)
Quarter: 2021Q2

REPORT INFORMATION
  Report Type: Spontaneous
  Country: IT (occurrence: IT)
  Receive Date: 20210528
  Receipt Date: 20210528
  Transmission Date: 20210717
  Serious: Yes (Other)
  Sender: FDA-Public Use
  Company Number: IT-MYLANLABS-2021M1030836

PATIENT
  Age: 34 Year
  Sex: Female

DRUGS (2)
  1. CAPECITABINE. [Suspect]
     Active Substance: CAPECITABINE
     Indication: BREAST CANCER METASTATIC
     Dosage: 2000 MILLIGRAM/SQ. METER, QD 14 DAY CYCLE
     Route: 065
  2. LAPATINIB [Suspect]
     Active Substance: LAPATINIB
     Indication: BREAST CANCER METASTATIC
     Dosage: 1250 MILLIGRAM, QD 21 DAY CYCLE
     Route: 065

REACTIONS (2)
  - Limbal stem cell deficiency [Recovered/Resolved]
  - Palmar-plantar erythrodysaesthesia syndrome [Unknown]
